FAERS Safety Report 6162828-X (Version None)
Quarter: 2009Q2

REPORT INFORMATION
  Report Type: 
  Country: None (occurrence: None)
  Receive Date: 20090421
  Receipt Date: 20080827
  Transmission Date: 20091009
  Serious: No
  Sender: FDA-Public Use
  Company Number: US-ASTRAZENECA-2008UW17564

PATIENT
  Age: 58 Year
  Sex: Female

DRUGS (2)
  1. TOPROL-XL [Suspect]
     Route: 048
  2. AMLODIPINE BESYLATE [Concomitant]

REACTIONS (3)
  - ANOSMIA [None]
  - DYSGEUSIA [None]
  - FALL [None]
